FAERS Safety Report 19513763 (Version 1)
Quarter: 2021Q3

REPORT INFORMATION
  Report Type: Spontaneous
  Country: US (occurrence: US)
  Receive Date: 20210709
  Receipt Date: 20210709
  Transmission Date: 20211014
  Serious: Yes (Life-Threatening, Hospitalization, Other)
  Sender: FDA-Public Use
  Company Number: US-GLENMARK PHARMACEUTICALS-2021GMK066525

PATIENT
  Age: 20 Year
  Sex: Female

DRUGS (1)
  1. OXCARBAZEPINE. [Suspect]
     Active Substance: OXCARBAZEPINE
     Indication: SEIZURE
     Dosage: UNK
     Route: 065

REACTIONS (5)
  - Drug reaction with eosinophilia and systemic symptoms [Unknown]
  - Pneumonitis [Recovering/Resolving]
  - Hepatic function abnormal [Recovering/Resolving]
  - Acute kidney injury [Unknown]
  - Respiratory failure [Recovering/Resolving]
